FAERS Safety Report 21640229 (Version 9)
Quarter: 2024Q2

REPORT INFORMATION
  Report Type: Report from Study
  Country: US (occurrence: US)
  Receive Date: 20221124
  Receipt Date: 20240605
  Transmission Date: 20240715
  Serious: Yes (Hospitalization, Other)
  Sender: FDA-Public Use
  Company Number: US-BAUSCH-BL-2022-012612

PATIENT
  Age: 71 Year
  Sex: Male
  Weight: 86.26 kg

DRUGS (7)
  1. XIFAXAN [Suspect]
     Active Substance: RIFAXIMIN
     Indication: Dysbiosis
     Route: 048
     Dates: start: 202203, end: 2022
  2. XIFAXAN [Suspect]
     Active Substance: RIFAXIMIN
     Indication: Gastrointestinal disorder
     Route: 048
     Dates: start: 20220605
  3. XIFAXAN [Suspect]
     Active Substance: RIFAXIMIN
     Indication: Product use in unapproved indication
     Route: 065
  4. DILAUDID [Concomitant]
     Active Substance: HYDROMORPHONE HYDROCHLORIDE
     Indication: Product used for unknown indication
  5. ISOSORBIDE MONONITRATE [Concomitant]
     Active Substance: ISOSORBIDE MONONITRATE
     Indication: Product used for unknown indication
  6. NITROGLYCERIN [Concomitant]
     Active Substance: NITROGLYCERIN
     Indication: Product used for unknown indication
  7. PINDOLOL [Concomitant]
     Active Substance: PINDOLOL
     Indication: Product used for unknown indication

REACTIONS (14)
  - Infection [Recovered/Resolved]
  - Hospitalisation [Unknown]
  - Myocardial infarction [Recovering/Resolving]
  - Limb reconstructive surgery [Unknown]
  - Fall [Recovering/Resolving]
  - Abnormal loss of weight [Not Recovered/Not Resolved]
  - Blood sodium increased [Unknown]
  - Walking aid user [Unknown]
  - Nausea [Unknown]
  - Product use in unapproved indication [Unknown]
  - Inability to afford medication [Unknown]
  - Therapy interrupted [Unknown]
  - Product distribution issue [Unknown]
  - Insurance issue [Unknown]

NARRATIVE: CASE EVENT DATE: 20220101
